FAERS Safety Report 5955367-X (Version None)
Quarter: 2008Q4

REPORT INFORMATION
  Report Type: 
  Country: None (occurrence: None)
  Receive Date: 20081112
  Receipt Date: 20081027
  Transmission Date: 20090506
  Serious: Yes (Other)
  Sender: FDA-Public Use
  Company Number: 107#08#2008-05540

PATIENT
  Age: 61 Year
  Sex: Male

DRUGS (2)
  1. MIRTAZAPINE [Suspect]
     Indication: FLAT AFFECT
     Dosage: 15 MG
  2. MIRTAZAPINE [Suspect]
     Indication: SLEEP DISORDER
     Dosage: 15 MG

REACTIONS (2)
  - HYPONATRAEMIA [None]
  - SOMNOLENCE [None]
